FAERS Safety Report 15312093 (Version 1)
Quarter: 2018Q3

REPORT INFORMATION
  Report Type: Report from Study
  Country: FR (occurrence: FR)
  Receive Date: 20180823
  Receipt Date: 20180823
  Transmission Date: 20181010
  Serious: Yes (Other)
  Sender: FDA-Public Use
  Company Number: FR-ASTRAZENECA-2015SF03109

PATIENT
  Age: 25149 Day
  Sex: Female

DRUGS (15)
  1. MEDI?563 [Suspect]
     Active Substance: BENRALIZUMAB
     Indication: ASTHMA
     Route: 058
     Dates: start: 20150925, end: 20150925
  2. UVEDOSE [Concomitant]
     Active Substance: CHOLECALCIFEROL
     Indication: OSTEOPOROSIS
     Dosage: 100.00 KIU QM
     Route: 048
     Dates: start: 2011
  3. MEDI?563 [Suspect]
     Active Substance: BENRALIZUMAB
     Indication: ASTHMA
     Route: 058
     Dates: start: 20150605
  4. SOLUPRED [Concomitant]
     Indication: ASTHMA
     Dosage: 35.00 MG QD
     Route: 048
     Dates: start: 20150412
  5. AVAMYS [Concomitant]
     Active Substance: FLUTICASONE FUROATE
     Indication: NASAL POLYPS
     Dosage: 55.00 UG QD
     Route: 045
     Dates: start: 201401
  6. CALTRATE D3 [Concomitant]
     Indication: OSTEOPOROSIS
     Dosage: QD
     Route: 048
     Dates: start: 2011
  7. ESOMEPRAZOLE [Concomitant]
     Active Substance: ESOMEPRAZOLE
     Indication: GASTROOESOPHAGEAL REFLUX DISEASE
     Dosage: 40.00 MG QD
     Route: 048
     Dates: start: 1998
  8. MEDI?563 [Suspect]
     Active Substance: BENRALIZUMAB
     Indication: ASTHMA
     Route: 058
     Dates: start: 20150731
  9. SERETIDE [Concomitant]
     Active Substance: FLUTICASONE PROPIONATE\SALMETEROL XINAFOATE
     Indication: ASTHMA
     Dosage: 2000.00 UG BID/200.00 UG BID
     Route: 055
     Dates: start: 2008
  10. FUROSEMIDE. [Concomitant]
     Active Substance: FUROSEMIDE
     Indication: OEDEMA PERIPHERAL
     Dosage: 40.00 MG QD
     Route: 048
     Dates: start: 20150820
  11. CANDESARTAN + HYDROCHLOROTHIAZIDE [Concomitant]
     Active Substance: CANDESARTAN CILEXETIL\HYDROCHLOROTHIAZIDE
     Indication: HYPERTENSION
     Dosage: QD
     Route: 048
     Dates: start: 2007
  12. SOLUPRED [Concomitant]
     Indication: ASTHMA
     Dosage: 30.00 MG QD
     Route: 048
     Dates: start: 20150828, end: 20150925
  13. SOLUPRED [Concomitant]
     Indication: ASTHMA
     Dosage: 20.00 MG DAILY
     Route: 048
     Dates: start: 20150926
  14. KESTIN [Concomitant]
     Active Substance: EBASTINE
     Indication: NASAL POLYPS
     Dosage: 2.00 TABLET BID
     Route: 048
     Dates: start: 201401
  15. SERETIDE [Concomitant]
     Active Substance: FLUTICASONE PROPIONATE\SALMETEROL XINAFOATE
     Indication: ASTHMA
     Dosage: 2000.00 UG QD/200.00 UG QD
     Route: 055
     Dates: start: 2008, end: 20150926

REACTIONS (1)
  - Chronic kidney disease [Not Recovered/Not Resolved]

NARRATIVE: CASE EVENT DATE: 20150925
